FAERS Safety Report 17871291 (Version 1)
Quarter: 2020Q2

REPORT INFORMATION
  Report Type: Report from Study
  Country: CA (occurrence: CA)
  Receive Date: 20200608
  Receipt Date: 20200608
  Transmission Date: 20200714
  Serious: Yes (Hospitalization)
  Sender: FDA-Public Use
  Company Number: CA-EISAI MEDICAL RESEARCH-EC-2020-074478

PATIENT
  Age: 84 Year
  Sex: Male

DRUGS (1)
  1. LENVIMA [Suspect]
     Active Substance: LENVATINIB
     Indication: HEPATOCELLULAR CARCINOMA
     Route: 048
     Dates: start: 20200501, end: 20200510

REACTIONS (6)
  - Seizure [Unknown]
  - Hypertension [Unknown]
  - Confusional state [Unknown]
  - Fatigue [Unknown]
  - Gait inability [Unknown]
  - Memory impairment [Unknown]

NARRATIVE: CASE EVENT DATE: 202005
